FAERS Safety Report 15838434 (Version 1)
Quarter: 2019Q1

REPORT INFORMATION
  Report Type: Spontaneous
  Country: US (occurrence: US)
  Receive Date: 20190117
  Receipt Date: 20190117
  Transmission Date: 20190417
  Serious: Yes (Other)
  Sender: FDA-Public Use
  Company Number: US-PFIZER INC-2019019640

PATIENT
  Age: 71 Year
  Sex: Female
  Weight: 61.23 kg

DRUGS (1)
  1. ADVIL [Suspect]
     Active Substance: IBUPROFEN
     Indication: SPINAL COLUMN STENOSIS
     Dosage: 200 MG, 3X/DAY
     Route: 048
     Dates: start: 201812, end: 20190107

REACTIONS (7)
  - Faecaloma [Unknown]
  - Constipation [Recovered/Resolved with Sequelae]
  - Diarrhoea [Recovering/Resolving]
  - Rectal haemorrhage [Recovering/Resolving]
  - Pain [Recovering/Resolving]
  - Haemorrhoids [Not Recovered/Not Resolved]
  - Product use issue [Unknown]

NARRATIVE: CASE EVENT DATE: 201812
